FAERS Safety Report 8840749 (Version 4)
Quarter: 2013Q1

REPORT INFORMATION
  Report Type: Spontaneous
  Country: US (occurrence: US)
  Receive Date: 20121015
  Receipt Date: 20130212
  Transmission Date: 20140127
  Serious: Yes (Death)
  Sender: FDA-Public Use
  Company Number: US-ELI_LILLY_AND_COMPANY-US201210004157

PATIENT
  Sex: Male
  Weight: 86.17 kg

DRUGS (2)
  1. ADCIRCA [Suspect]
  2. REMODULIN [Concomitant]
     Indication: PULMONARY ARTERIAL HYPERTENSION
     Dosage: 58 NG/KG/MIN
     Dates: start: 20120208

REACTIONS (1)
  - Disease progression [Fatal]
